FAERS Safety Report 16630178 (Version 2)
Quarter: 2019Q3

REPORT INFORMATION
  Report Type: Report from Study
  Country: AU (occurrence: AU)
  Receive Date: 20190725
  Receipt Date: 20190822
  Transmission Date: 20191004
  Serious: Yes (Other)
  Sender: FDA-Public Use
  Company Number: AU-OTSUKA-2019_026913

PATIENT
  Age: 59 Year
  Sex: Male

DRUGS (2)
  1. TOLVAPTAN [Suspect]
     Active Substance: TOLVAPTAN
     Indication: CONGENITAL CYSTIC KIDNEY DISEASE
     Dosage: 45 MG, UNK
     Route: 065
  2. TOLVAPTAN [Suspect]
     Active Substance: TOLVAPTAN
     Dosage: 15 MG, UNK
     Route: 065

REACTIONS (12)
  - Blood bicarbonate decreased [Unknown]
  - Urine analysis abnormal [Unknown]
  - Blood urea increased [Not Recovered/Not Resolved]
  - Blood parathyroid hormone increased [Unknown]
  - Blood phosphorus increased [Not Recovered/Not Resolved]
  - Haematocrit decreased [Unknown]
  - Protein urine present [Unknown]
  - Glomerular filtration rate decreased [Not Recovered/Not Resolved]
  - Red blood cell sedimentation rate increased [Unknown]
  - Haemoglobin decreased [Unknown]
  - Urine protein/creatinine ratio increased [Unknown]
  - Blood creatinine increased [Recovering/Resolving]

NARRATIVE: CASE EVENT DATE: 20190716
